FAERS Safety Report 10167667 (Version 1)
Quarter: 2014Q2

REPORT INFORMATION
  Report Type: Spontaneous
  Country: US (occurrence: US)
  Receive Date: 20140512
  Receipt Date: 20140512
  Transmission Date: 20141212
  Serious: No
  Sender: FDA-Public Use
  Company Number: US-TARO-2013P1006328

PATIENT
  Age: 38 Year
  Sex: Female
  Weight: 80.29 kg

DRUGS (1)
  1. CLOTRIMAZOLE VAGINAL CREAM USP 2% 3 DAY [Suspect]
     Indication: FUNGAL INFECTION
     Route: 067
     Dates: start: 20130519

REACTIONS (1)
  - Abdominal pain upper [Recovered/Resolved]
